FAERS Safety Report 7832298-1 (Version None)
Quarter: 2011Q4

REPORT INFORMATION
  Report Type: 
  Country: None (occurrence: None)
  Receive Date: 20111022
  Receipt Date: 20111014
  Transmission Date: 20120403
  Serious: No
  Sender: FDA-Public Use
  Company Number: US-BAYER-2011-101132

PATIENT
  Age: 70 Year
  Sex: Male

DRUGS (2)
  1. SALINE [Suspect]
     Dosage: 20 ML, UNK
  2. EOVIST [Suspect]
     Indication: NUCLEAR MAGNETIC RESONANCE IMAGING
     Dosage: 8 ML, ONCE
     Route: 042
     Dates: start: 20111014, end: 20111014

REACTIONS (1)
  - INJECTION SITE EXTRAVASATION [None]
